FAERS Safety Report 20128092 (Version 2)
Quarter: 2022Q1

REPORT INFORMATION
  Report Type: Report from Study
  Country: GR (occurrence: GR)
  Receive Date: 20211129
  Receipt Date: 20220218
  Transmission Date: 20220423
  Serious: Yes (Other)
  Sender: FDA-Public Use
  Company Number: GR-REGENERON PHARMACEUTICALS, INC.-2021-103642

PATIENT

DRUGS (7)
  1. CEMIPLIMAB [Suspect]
     Active Substance: CEMIPLIMAB
     Indication: Non-small cell lung cancer stage IV
     Dosage: 350 MG, Q3W
     Route: 042
     Dates: start: 20200220, end: 20211025
  2. CARBOPLATIN [Suspect]
     Active Substance: CARBOPLATIN
     Indication: Non-small cell lung cancer stage IV
     Dosage: AUC OF 5 OR 6  MG/ML/MIN
     Route: 042
     Dates: start: 20200220, end: 20200422
  3. PEMETREXED [Suspect]
     Active Substance: PEMETREXED
     Indication: Non-small cell lung cancer stage IV
     Dosage: 500 MG/M2, Q3W
     Route: 042
     Dates: start: 20200220, end: 20210928
  4. ALFURAL [Concomitant]
     Indication: Benign prostatic hyperplasia
     Dosage: 10 MG, QD
     Route: 048
     Dates: start: 2018
  5. CALCIUM CARBONATE\CHOLECALCIFEROL [Concomitant]
     Active Substance: CALCIUM CARBONATE\CHOLECALCIFEROL
     Indication: Metastases to bone
     Dosage: 500/400 MG, QD
     Route: 048
     Dates: start: 20200731
  6. LEVOTHYROXINE [Concomitant]
     Active Substance: LEVOTHYROXINE
     Indication: Hypothyroidism
     Dosage: 100 MICROG, QD
     Route: 048
     Dates: start: 20200828
  7. XGEVA [Concomitant]
     Active Substance: DENOSUMAB
     Indication: Metastases to bone
     Dosage: 120 MG, Q4W
     Route: 058
     Dates: start: 20210706

REACTIONS (1)
  - Ventricular dysfunction [Recovered/Resolved]

NARRATIVE: CASE EVENT DATE: 20211103
